FAERS Safety Report 6544565-2 (Version None)
Quarter: 2010Q1

REPORT INFORMATION
  Report Type: 
  Country: None (occurrence: None)
  Receive Date: 20100115
  Receipt Date: 20100107
  Transmission Date: 20100710
  Serious: Yes (Hospitalization)
  Sender: FDA-Public Use
  Company Number: SPV1-2009-02223

PATIENT
  Age: 67 Year
  Sex: Male

DRUGS (11)
  1. FOSRENOL [Suspect]
     Indication: HYPERPHOSPHATAEMIA
     Dosage: ORAL
     Route: 048
     Dates: start: 20091027, end: 20091105
  2. LANSOPRAZOLE [Concomitant]
  3. CANDESARTAN CILEXETIL [Concomitant]
  4. ZOLPIDEM TARTRATE [Concomitant]
  5. LENDORMIN DAINIPPO (BROTIZOLAM) [Concomitant]
  6. DAI-KENCHU-TO [Concomitant]
  7. DIPRIVAN [Concomitant]
  8. FENTANYL-100 [Concomitant]
  9. ULTIVA [Concomitant]
  10. VECURONIUM BROMIDE [Concomitant]
  11. RED BLOOD CELLS [Concomitant]

REACTIONS (3)
  - COMPUTERISED TOMOGRAM ABNORMAL [None]
  - DRUG ADMINISTRATION ERROR [None]
  - ILEUS [None]
